FAERS Safety Report 6668632-8 (Version None)
Quarter: 2010Q2

REPORT INFORMATION
  Report Type: 
  Country: None (occurrence: None)
  Receive Date: 20100406
  Receipt Date: 20100401
  Transmission Date: 20101027
  Serious: Yes (Death)
  Sender: FDA-Public Use
  Company Number: PHEH2010US02978

PATIENT
  Sex: Male
  Weight: 77.3 kg

DRUGS (1)
  1. EXJADE [Suspect]
     Indication: CHRONIC LYMPHOCYTIC LEUKAEMIA
     Dosage: 1500 MG, QD
     Route: 048
     Dates: start: 20091216

REACTIONS (1)
  - CHRONIC MYELOID LEUKAEMIA [None]
